FAERS Safety Report 5741943-6 (Version None)
Quarter: 2008Q2

REPORT INFORMATION
  Report Type: 
  Country: None (occurrence: None)
  Receive Date: 20080519
  Receipt Date: 20070809
  Transmission Date: 20081010
  Serious: No
  Sender: FDA-Public Use
  Company Number: US-KINGPHARMUSA00001-K200701015

PATIENT

DRUGS (2)
  1. TAPAZOLE [Suspect]
     Dosage: 40 MG, QD
     Route: 048
     Dates: start: 20070501, end: 20070727
  2. TAPAZOLE [Suspect]
     Dosage: 20 MG, QD
     Route: 048
     Dates: start: 20070803

REACTIONS (1)
  - ALOPECIA [None]
